FAERS Safety Report 7317296-9 (Version None)
Quarter: 2011Q1

REPORT INFORMATION
  Report Type: 
  Country: None (occurrence: None)
  Receive Date: 20110226
  Receipt Date: 20101019
  Transmission Date: 20110831
  Serious: No
  Sender: FDA-Public Use
  Company Number: US-ALLERGAN-1013401US

PATIENT
  Age: 51 Year
  Sex: Male

DRUGS (1)
  1. BOTOX COSMETIC [Suspect]
     Indication: SKIN WRINKLING
     Dosage: UNK
     Route: 030
     Dates: start: 20101016, end: 20101016

REACTIONS (4)
  - ASTHENOPIA [None]
  - HEADACHE [None]
  - VISUAL ACUITY REDUCED [None]
  - SWELLING FACE [None]
